FAERS Safety Report 7218171-0 (Version None)
Quarter: 2011Q1

REPORT INFORMATION
  Report Type: 
  Country: None (occurrence: None)
  Receive Date: 20110110
  Receipt Date: 20101230
  Transmission Date: 20110831
  Serious: Yes (Other)
  Sender: FDA-Public Use
  Company Number: IN-ELI_LILLY_AND_COMPANY-IN201101000022

PATIENT
  Sex: Female

DRUGS (3)
  1. VITAMIN D [Concomitant]
     Indication: SUPPLEMENTATION THERAPY
  2. CALCIUM [Concomitant]
     Indication: SUPPLEMENTATION THERAPY
  3. FORTEO [Suspect]
     Indication: OSTEOPOROSIS
     Dosage: 20 UG, DAILY (1/D)
     Route: 058

REACTIONS (1)
  - DEMENTIA [None]
